FAERS Safety Report 15439957 (Version 1)
Quarter: 2018Q3

REPORT INFORMATION
  Report Type: Spontaneous
  Country: US (occurrence: US)
  Receive Date: 20180928
  Receipt Date: 20180928
  Transmission Date: 20181010
  Serious: No
  Sender: FDA-Public Use
  Company Number: US-BAYER-2018-181785

PATIENT
  Age: 93 Year
  Sex: Female

DRUGS (3)
  1. MIRALAX [Suspect]
     Active Substance: POLYETHYLENE GLYCOL 3350
     Indication: GASTROINTESTINAL DISORDER
     Dosage: UNK UNK, PRN
     Route: 048
  2. CHLOROMYCETIN [Concomitant]
     Active Substance: CHLORAMPHENICOL
     Dosage: UNK  BEFORE THE WHITE SECTION FILL UP
  3. ARTEMISININ [Concomitant]
     Active Substance: DIETARY SUPPLEMENT

REACTIONS (1)
  - Underdose [Unknown]
